FAERS Safety Report 10221358 (Version 1)
Quarter: 2014Q2

REPORT INFORMATION
  Report Type: Spontaneous
  Country: CR (occurrence: CR)
  Receive Date: 20140606
  Receipt Date: 20140606
  Transmission Date: 20141212
  Serious: Yes (Death, Life-Threatening, Hospitalization, Disabling, Other)
  Sender: FDA-Public Use
  Company Number: CR-UCBSA-2014000451

PATIENT
  Sex: Male

DRUGS (1)
  1. KEPPRA [Suspect]
     Indication: STATUS EPILEPTICUS
     Dosage: 2 GRAMS (G)
     Route: 065

REACTIONS (3)
  - Death [Fatal]
  - Psychotic disorder [Unknown]
  - Sepsis [Unknown]
